FAERS Safety Report 7750070-8 (Version None)
Quarter: 2011Q3

REPORT INFORMATION
  Report Type: 
  Country: None (occurrence: None)
  Receive Date: 20110914
  Receipt Date: 20110902
  Transmission Date: 20111222
  Serious: Yes (Other)
  Sender: FDA-Public Use
  Company Number: PR-PFIZER INC-2008033257

PATIENT

DRUGS (1)
  1. SUTENT [Suspect]

REACTIONS (8)
  - HYPERTENSION [None]
  - SKIN DISCOLOURATION [None]
  - TRANSAMINASES INCREASED [None]
  - FATIGUE [None]
  - THROMBOCYTOPENIA [None]
  - MUCOSAL INFLAMMATION [None]
  - STOMATITIS [None]
  - ASTHENIA [None]
